FAERS Safety Report 5286234-5 (Version None)
Quarter: 2007Q2

REPORT INFORMATION
  Report Type: 
  Country: None (occurrence: None)
  Receive Date: 20070404
  Receipt Date: 20070326
  Transmission Date: 20071010
  Serious: Yes (Hospitalization)
  Sender: FDA-Public Use
  Company Number: FR-AVENTIS-200711119FR

PATIENT
  Sex: Male

DRUGS (9)
  1. LASILIX                            /00032601/ [Suspect]
     Indication: DRUG USE FOR UNKNOWN INDICATION
     Route: 048
     Dates: start: 20070201
  2. CORTANCYL [Concomitant]
  3. PLAVIX [Concomitant]
     Dates: start: 20070203
  4. CORDARONE [Concomitant]
     Dates: start: 20070213
  5. CORDARONE [Concomitant]
  6. SECTRAL [Concomitant]
     Route: 048
     Dates: start: 20070213
  7. SECTRAL [Concomitant]
     Route: 048
  8. DISCOTRINE [Concomitant]
     Route: 023
  9. INIPOMP                            /01263201/ [Concomitant]
     Dates: start: 20070203

REACTIONS (10)
  - CEREBRAL ATROPHY [None]
  - CONDITION AGGRAVATED [None]
  - DEHYDRATION [None]
  - FALL [None]
  - LOSS OF CONSCIOUSNESS [None]
  - ORTHOSTATIC HYPOTENSION [None]
  - PANCYTOPENIA [None]
  - RENAL CYST [None]
  - RENAL FAILURE [None]
  - SINUSITIS [None]
